FAERS Safety Report 5334176-9 (Version None)
Quarter: 2007Q2

REPORT INFORMATION
  Report Type: 
  Country: None (occurrence: None)
  Receive Date: 20070523
  Receipt Date: 20070523
  Transmission Date: 20071010
  Serious: Yes (Other)
  Sender: FDA-Public Use
  Company Number: None

PATIENT
  Age: 46 Year
  Sex: Female
  Weight: 63.5036 kg

DRUGS (2)
  1. CHANTIX [Suspect]
     Indication: SMOKING CESSATION THERAPY
     Dosage: 1 MG P.O. BID
     Route: 048
     Dates: start: 20070420, end: 20070518
  2. SOLU-MEDROL [Suspect]
     Indication: MULTIPLE SCLEROSIS
     Dosage: INFUSION DAILY X1
     Dates: start: 20070515, end: 20070518

REACTIONS (2)
  - HEART RATE DECREASED [None]
  - MULTIPLE SCLEROSIS [None]
